FAERS Safety Report 14833334 (Version 1)
Quarter: 2018Q2

REPORT INFORMATION
  Report Type: Spontaneous
  Country: NL (occurrence: NL)
  Receive Date: 20180501
  Receipt Date: 20180501
  Transmission Date: 20180711
  Serious: Yes (Other)
  Sender: FDA-Public Use
  Company Number: NL-FRESENIUS KABI-FK201805228

PATIENT
  Age: 50 Year

DRUGS (8)
  1. VALPROATE [Interacting]
     Active Substance: VALPROIC ACID
     Route: 042
  2. PHENYTOIN. [Interacting]
     Active Substance: PHENYTOIN
     Indication: PRODUCT USED FOR UNKNOWN INDICATION
     Route: 042
  3. VALPROATE [Suspect]
     Active Substance: VALPROIC ACID
     Indication: PRODUCT USED FOR UNKNOWN INDICATION
     Route: 042
  4. VALPROATE [Interacting]
     Active Substance: VALPROIC ACID
     Route: 042
  5. MEROPENEM (MANUFACTURER UNKNOWN) [Interacting]
     Active Substance: MEROPENEM
     Indication: PRODUCT USED FOR UNKNOWN INDICATION
     Route: 042
  6. PHENYTOIN. [Interacting]
     Active Substance: PHENYTOIN
     Route: 042
  7. MEROPENEM (MANUFACTURER UNKNOWN) [Interacting]
     Active Substance: MEROPENEM
     Route: 042
  8. PHENYTOIN. [Interacting]
     Active Substance: PHENYTOIN
     Route: 042

REACTIONS (6)
  - Hypotension [Unknown]
  - Overdose [Unknown]
  - Drug interaction [Unknown]
  - Toxicity to various agents [Unknown]
  - Depressed level of consciousness [Unknown]
  - Dyspnoea [Unknown]
